FAERS Safety Report 4722376-8 (Version None)
Quarter: 2005Q3

REPORT INFORMATION
  Report Type: 
  Country: None (occurrence: None)
  Receive Date: 20050722
  Receipt Date: 20050321
  Transmission Date: 20060218
  Serious: No
  Sender: FDA-Public Use
  Company Number: US-GLAXOSMITHKLINE-A0550609A

PATIENT
  Age: 37 Year
  Sex: Male

DRUGS (7)
  1. AVANDIA [Suspect]
     Dosage: 8MG PER DAY
     Route: 048
     Dates: start: 20020301
  2. GLYBURIDE [Concomitant]
  3. CLONIDIN [Concomitant]
  4. LASIX [Concomitant]
  5. XANAX [Concomitant]
  6. MORPHINE [Concomitant]
  7. OXYCONTIN [Concomitant]

REACTIONS (1)
  - HEADACHE [None]
